FAERS Safety Report 7657249 (Version 2)
Quarter: 2012Q4

REPORT INFORMATION
  Report Type: 
  Country: US (occurrence: US)
  Receive Date: 20101104
  Receipt Date: 20121012
  Transmission Date: 20130627
  Serious: Yes (Other)
  Sender: FDA-Public Use
  Company Number: US-AMGEN-USASP2010001017

PATIENT
  Age: 57 Year
  Sex: Female
  Weight: 81.63 kg

DRUGS (1)
  1. NPLATE [Suspect]
     Indication: IDIOPATHIC THROMBOCYTOPENIC PURPURA
     Dates: start: 20100304, end: 20100730

REACTIONS (1)
  - Therapeutic response decreased [Unknown]
